FAERS Safety Report 22830294 (Version 3)
Quarter: 2023Q4

REPORT INFORMATION
  Report Type: Spontaneous
  Country: JP (occurrence: JP)
  Receive Date: 20230817
  Receipt Date: 20231219
  Transmission Date: 20240110
  Serious: Yes (Other)
  Sender: FDA-Public Use
  Company Number: JP-ABBVIE-5367452

PATIENT
  Age: 39 Year
  Sex: Male

DRUGS (3)
  1. VENCLEXTA [Suspect]
     Active Substance: VENETOCLAX
     Indication: Acute leukaemia
     Dosage: DURATION TEXT: 1 CYCLE
     Route: 048
  2. VORICONAZOLE [Concomitant]
     Active Substance: VORICONAZOLE
     Indication: Antifungal treatment
  3. AZACITIDINE [Concomitant]
     Active Substance: AZACITIDINE
     Indication: Acute leukaemia
     Dosage: DURATION TEXT: 1 CYCLE

REACTIONS (3)
  - Transplant [Unknown]
  - Off label use [Unknown]
  - Acute leukaemia [Unknown]
